FAERS Safety Report 21204458 (Version 1)
Quarter: 2022Q3

REPORT INFORMATION
  Report Type: Spontaneous
  Country: FR (occurrence: FR)
  Receive Date: 20220812
  Receipt Date: 20220812
  Transmission Date: 20221026
  Serious: Yes (Hospitalization)
  Sender: FDA-Public Use
  Company Number: None

PATIENT
  Age: 74 Year
  Sex: Female
  Weight: 63.5 kg

DRUGS (1)
  1. QUETIAPINE [Suspect]
     Active Substance: QUETIAPINE
     Indication: Psychotic disorder
     Dosage: UNIT DOSE : 350MG, FREQUENCY TIME : 1 DAY, THERAPY START DATE  : NASK
     Route: 065
     Dates: end: 20220521

REACTIONS (1)
  - Colitis ischaemic [Not Recovered/Not Resolved]

NARRATIVE: CASE EVENT DATE: 20220521
